FAERS Safety Report 6895465-X (Version None)
Quarter: 2010Q3

REPORT INFORMATION
  Report Type: 
  Country: None (occurrence: None)
  Receive Date: 20100802
  Receipt Date: 20100729
  Transmission Date: 20110219
  Serious: Yes (Other)
  Sender: FDA-Public Use
  Company Number: AT-BRISTOL-MYERS SQUIBB COMPANY-15144579

PATIENT
  Age: 70 Year
  Sex: Female
  Weight: 58 kg

DRUGS (1)
  1. ORENCIA [Suspect]
     Indication: POLYARTHRITIS
     Dosage: 3 INF 31MAR10+14APR
     Route: 042
     Dates: start: 20100317

REACTIONS (4)
  - HEADACHE [None]
  - HYPERTENSIVE CRISIS [None]
  - OEDEMA PERIPHERAL [None]
  - VERTIGO [None]
